FAERS Safety Report 24812025 (Version 1)
Quarter: 2025Q1

REPORT INFORMATION
  Report Type: Spontaneous
  Country: US (occurrence: None)
  Receive Date: 20250106
  Receipt Date: 20250106
  Transmission Date: 20250409
  Serious: Yes (Other)
  Sender: FDA-CTU
  Company Number: None

PATIENT
  Age: 11 Week
  Sex: Male
  Weight: 4 kg

DRUGS (1)
  1. VOXZOGO [Suspect]
     Active Substance: VOSORITIDE
     Indication: Osteochondrodysplasia
     Dosage: FREQUENCY : DAILY;?
     Route: 058

REACTIONS (1)
  - Hypoxia [None]

NARRATIVE: CASE EVENT DATE: 20250102
